FAERS Safety Report 4575858-6 (Version None)
Quarter: 2005Q1

REPORT INFORMATION
  Report Type: 
  Country: None (occurrence: None)
  Receive Date: 20050209
  Receipt Date: 20040709
  Transmission Date: 20050727
  Serious: Yes (Disabling, Other)
  Sender: FDA-Public Use
  Company Number: US-MERCK-0407USA00891

PATIENT
  Age: 57 Year
  Sex: Female
  Weight: 95 kg

DRUGS (16)
  1. VIOXX [Suspect]
     Indication: BACK PAIN
     Route: 048
     Dates: start: 20010401, end: 20021201
  2. VIOXX [Suspect]
     Route: 048
     Dates: start: 20021219, end: 20030205
  3. VIOXX [Suspect]
     Indication: MYOFASCIAL PAIN SYNDROME
     Route: 048
     Dates: start: 20010401, end: 20021201
  4. VIOXX [Suspect]
     Route: 048
     Dates: start: 20021219, end: 20030205
  5. NEURONTIN [Concomitant]
     Route: 065
     Dates: start: 20010101, end: 20020101
  6. IBUPROFEN [Concomitant]
     Route: 065
     Dates: start: 19980101, end: 20030101
  7. CLARITIN [Concomitant]
     Route: 065
  8. PREMARIN [Concomitant]
     Route: 065
  9. CEPHALEXIN [Concomitant]
     Route: 065
  10. SKELAXIN [Concomitant]
     Route: 065
  11. TRAZODONE HYDROCHLORIDE [Concomitant]
     Route: 065
  12. ZOVIRAX [Concomitant]
     Route: 065
  13. METHYLPREDNISOLONE [Concomitant]
     Route: 065
  14. PROPOXYPHENE HYDROCHLORIDE [Concomitant]
     Route: 065
     Dates: start: 20010101, end: 20030101
  15. NAPROXEN [Concomitant]
     Route: 065
     Dates: start: 19990101, end: 20030101
  16. BACLOFEN [Concomitant]
     Route: 048

REACTIONS (46)
  - ACCIDENT AT HOME [None]
  - ACCIDENT AT WORK [None]
  - ADVERSE EVENT [None]
  - ANXIETY [None]
  - AORTIC VALVE INCOMPETENCE [None]
  - ASTHENIA [None]
  - CARDIAC MURMUR [None]
  - CARPAL TUNNEL SYNDROME [None]
  - CEREBROVASCULAR ACCIDENT [None]
  - CHEST PAIN [None]
  - CLUMSINESS [None]
  - COGNITIVE DISORDER [None]
  - CONTUSION [None]
  - DEPRESSION [None]
  - DISTURBANCE IN ATTENTION [None]
  - DRUG EFFECT DECREASED [None]
  - DYSPEPSIA [None]
  - DYSPNOEA [None]
  - DYSTHYMIC DISORDER [None]
  - FACE INJURY [None]
  - FALL [None]
  - FATIGUE [None]
  - GASTROOESOPHAGEAL REFLUX DISEASE [None]
  - GENERAL SYMPTOM [None]
  - HEADACHE [None]
  - HYPERTENSION [None]
  - INCREASED TENDENCY TO BRUISE [None]
  - INJURY [None]
  - INTERVERTEBRAL DISC PROTRUSION [None]
  - IRRITABILITY [None]
  - JOINT INJURY [None]
  - MEMORY IMPAIRMENT [None]
  - MITRAL VALVE INCOMPETENCE [None]
  - MYOFASCIAL PAIN SYNDROME [None]
  - PAIN [None]
  - PAIN IN EXTREMITY [None]
  - PRURITUS [None]
  - SLEEP DISORDER [None]
  - STRESS [None]
  - STRESS FRACTURE [None]
  - THROMBOSIS [None]
  - TINNITUS [None]
  - TRANSIENT ISCHAEMIC ATTACK [None]
  - TREMOR [None]
  - TRICUSPID VALVE INCOMPETENCE [None]
  - WEIGHT INCREASED [None]
